FAERS Safety Report 25938463 (Version 2)
Quarter: 2025Q4

REPORT INFORMATION
  Report Type: Spontaneous
  Country: EU (occurrence: EU)
  Receive Date: 20251019
  Receipt Date: 20251025
  Transmission Date: 20260117
  Serious: Yes (Life-Threatening, Hospitalization, Other)
  Sender: CELLTRION
  Company Number: None

PATIENT

DRUGS (4)
  1. HERZUMA [Suspect]
     Active Substance: TRASTUZUMAB-PKRB
     Indication: Breast cancer
     Dosage: 6 MILLIGRAM/KILOGRAM, EVERY 21 DAYS
     Route: 042
     Dates: start: 20250606, end: 20250731
  2. TRASTUZUMAB [Suspect]
     Active Substance: TRASTUZUMAB
     Indication: Breast cancer
     Dosage: UNK
     Dates: start: 201910, end: 202007
  3. CAPECITABINE [Suspect]
     Active Substance: CAPECITABINE
     Indication: Breast cancer
     Dosage: 1250 MILLIGRAM, EVERY 12 HOURS
     Route: 048
     Dates: start: 20250606, end: 20250731
  4. TUKYSA [Suspect]
     Active Substance: TUCATINIB
     Indication: Breast cancer
     Dosage: 300 MILLIGRAM, EVERY 12 HOURS
     Route: 048
     Dates: start: 20250606, end: 20250731

REACTIONS (3)
  - Hypothyroidism [Recovering/Resolving]
  - Left ventricular dysfunction [Not Recovered/Not Resolved]
  - Cardiac failure [Recovering/Resolving]

NARRATIVE: CASE EVENT DATE: 20250731
